FAERS Safety Report 9315662 (Version 1)
Quarter: 2013Q2

REPORT INFORMATION
  Report Type: Spontaneous
  Country: US (occurrence: US)
  Receive Date: 20130529
  Receipt Date: 20130529
  Transmission Date: 20140414
  Serious: Yes (Life-Threatening, Other)
  Sender: FDA-Public Use
  Company Number: US-ASTRAZENECA-2013SE35804

PATIENT
  Sex: Male

DRUGS (1)
  1. BRILINTA [Suspect]
     Indication: ACUTE CORONARY SYNDROME
     Dosage: EVERY 12 HOURS
     Route: 048

REACTIONS (3)
  - Cardiac arrest [Unknown]
  - Heart rate decreased [Unknown]
  - Blood pressure decreased [Unknown]
